FAERS Safety Report 15762694 (Version 1)
Quarter: 2018Q4

REPORT INFORMATION
  Report Type: Spontaneous
  Country: US (occurrence: US)
  Receive Date: 20181226
  Receipt Date: 20181226
  Transmission Date: 20190205
  Serious: Yes (Hospitalization)
  Sender: FDA-Public Use
  Company Number: US-VERTEX PHARMACEUTICALS-2018-009807

PATIENT
  Age: 37 Year
  Sex: Female

DRUGS (21)
  1. SYMDEKO [Suspect]
     Active Substance: IVACAFTOR\TEZACAFTOR
     Indication: CYSTIC FIBROSIS
     Dosage: 100MG TEZACAFTOR/150MG IVACAFTOR AM; 150MG IVACAFTOR PM
     Route: 048
     Dates: start: 20180712
  2. ONDANSETRON [Concomitant]
     Active Substance: ONDANSETRON
  3. VENLAFAXINE [Concomitant]
     Active Substance: VENLAFAXINE HYDROCHLORIDE
  4. AZITHROMYCIN ANHYDROUS. [Concomitant]
     Active Substance: AZITHROMYCIN ANHYDROUS
  5. CLONAZEPAM. [Concomitant]
     Active Substance: CLONAZEPAM
  6. ESOMEPRAZOLE. [Concomitant]
     Active Substance: ESOMEPRAZOLE MAGNESIUM
  7. TIZANIDINE. [Concomitant]
     Active Substance: TIZANIDINE
  8. FLUTICASONE. [Concomitant]
     Active Substance: FLUTICASONE
  9. RIZATRIPTAN. [Concomitant]
     Active Substance: RIZATRIPTAN
  10. TRAZODONE [Concomitant]
     Active Substance: TRAZODONE HYDROCHLORIDE
  11. CAYSTON [Concomitant]
     Active Substance: AZTREONAM
  12. VENTOLIN HFA [Concomitant]
     Active Substance: ALBUTEROL SULFATE
  13. BACLOFEN. [Concomitant]
     Active Substance: BACLOFEN
  14. ENOXAPARIN [Concomitant]
     Active Substance: ENOXAPARIN
  15. GABAPENTIN. [Concomitant]
     Active Substance: GABAPENTIN
  16. HYDROMORPHONE                      /00080902/ [Concomitant]
     Active Substance: HYDROMORPHONE HYDROCHLORIDE
  17. PULMOZYME [Concomitant]
     Active Substance: DORNASE ALFA
  18. COLISTIMETHATE                     /00013204/ [Concomitant]
     Active Substance: COLISTIMETHATE SODIUM
  19. AMITRIPTYLINE [Concomitant]
     Active Substance: AMITRIPTYLINE
  20. FLUOXETINE [Concomitant]
     Active Substance: FLUOXETINE HYDROCHLORIDE
  21. RANITIDINE. [Concomitant]
     Active Substance: RANITIDINE

REACTIONS (1)
  - Infective pulmonary exacerbation of cystic fibrosis [Unknown]

NARRATIVE: CASE EVENT DATE: 20181206
